FAERS Safety Report 13772668 (Version 1)
Quarter: 2017Q3

REPORT INFORMATION
  Report Type: Spontaneous
  Country: US (occurrence: US)
  Receive Date: 20170720
  Receipt Date: 20170720
  Transmission Date: 20171127
  Serious: No
  Sender: FDA-Public Use
  Company Number: US-PERRIGO-16US019171

PATIENT
  Age: 35 Year
  Sex: Female
  Weight: 70.3 kg

DRUGS (3)
  1. MICONAZOLE 1 [Suspect]
     Active Substance: MICONAZOLE NITRATE
     Indication: VULVOVAGINAL PRURITUS
  2. MICONAZOLE 1 [Suspect]
     Active Substance: MICONAZOLE NITRATE
     Indication: VULVOVAGINAL MYCOTIC INFECTION
     Dosage: 1200 MG, SINGLE
     Route: 067
     Dates: start: 20160814, end: 20160814
  3. MICONAZOLE 1 [Suspect]
     Active Substance: MICONAZOLE NITRATE
     Indication: VAGINAL DISCHARGE

REACTIONS (4)
  - Vulvovaginal burning sensation [Recovering/Resolving]
  - Condition aggravated [Recovering/Resolving]
  - Vulvovaginal swelling [Not Recovered/Not Resolved]
  - Hypersensitivity [Not Recovered/Not Resolved]

NARRATIVE: CASE EVENT DATE: 20160815
